FAERS Safety Report 4559142-2 (Version None)
Quarter: 2005Q1

REPORT INFORMATION
  Report Type: 
  Country: None (occurrence: None)
  Receive Date: 20050124
  Receipt Date: 20031216
  Transmission Date: 20050727
  Serious: Yes (Hospitalization)
  Sender: FDA-Public Use
  Company Number: US-NOVOPROD-234485

PATIENT
  Age: 56 Year
  Sex: Male
  Weight: 115 kg

DRUGS (10)
  1. NOVOLIN 70/30 [Suspect]
     Indication: DIABETES MELLITUS INSULIN-DEPENDENT
     Dosage: 55 IU, BID
  2. LASIX [Concomitant]
     Indication: CARDIAC DISORDER
     Dosage: 120 MG, QD
     Route: 048
  3. COZAAR [Concomitant]
     Indication: CARDIAC DISORDER
     Dosage: 100 MG, QD
     Route: 048
  4. ATENOLOL [Concomitant]
     Indication: CARDIAC DISORDER
     Dosage: 25 MG, QD
     Route: 048
  5. DIGOXIN [Concomitant]
     Indication: CARDIAC DISORDER
     Dosage: .125 MG, QD
     Route: 048
  6. ASPIRIN [Concomitant]
     Indication: CARDIAC DISORDER
  7. LANTUS [Concomitant]
     Dosage: 65 IU, QD
     Route: 058
  8. MULTI-VITAMINS [Concomitant]
     Dosage: 1 TAB, QD
     Route: 048
  9. ASPIRIN [Concomitant]
     Dosage: 1 TAB, QD
  10. LIPITOR [Concomitant]
     Dosage: 20 MG, QD

REACTIONS (12)
  - ANGINA UNSTABLE [None]
  - ANXIETY [None]
  - BLOOD GLUCOSE INCREASED [None]
  - CARDIOMEGALY [None]
  - CHEST DISCOMFORT [None]
  - DEVICE FAILURE [None]
  - DIZZINESS [None]
  - DYSPNOEA [None]
  - FEELING ABNORMAL [None]
  - MEDICATION ERROR [None]
  - NAUSEA [None]
  - THERAPEUTIC AGENT TOXICITY [None]
